FAERS Safety Report 19123764 (Version 2)
Quarter: 2021Q2

REPORT INFORMATION
  Report Type: Spontaneous
  Country: US (occurrence: US)
  Receive Date: 20210412
  Receipt Date: 20210604
  Transmission Date: 20210717
  Serious: Yes (Death, Other)
  Sender: FDA-Public Use
  Company Number: US-SA-2021SA118572

PATIENT
  Age: 73 Year
  Sex: Male

DRUGS (1)
  1. ACT NOS (SODIUM FLUORIDE) [Suspect]
     Active Substance: SODIUM FLUORIDE
     Indication: TOOTH DISORDER
     Route: 048

REACTIONS (6)
  - Gingival disorder [Unknown]
  - Incorrect route of product administration [Unknown]
  - Product label issue [Fatal]
  - Eructation [Recovering/Resolving]
  - Myocardial infarction [Fatal]
  - Dental caries [Unknown]
